FAERS Safety Report 5201329-X (Version None)
Quarter: 2006Q4

REPORT INFORMATION
  Report Type: 
  Country: None (occurrence: None)
  Receive Date: 20061016
  Receipt Date: 20060714
  Transmission Date: 20070319
  Serious: No
  Sender: FDA-Public Use
  Company Number: 2006SP002718

PATIENT
  Age: 37 Year
  Sex: Female
  Weight: 113.3993 kg

DRUGS (10)
  1. LUNESTA [Suspect]
     Dosage: SEE IMAGE
     Route: 048
     Dates: start: 20060101, end: 20060618
  2. LUNESTA [Suspect]
     Dosage: SEE IMAGE
     Route: 048
     Dates: start: 20060619
  3. SYNTHROID [Concomitant]
  4. PANTOPRAZOLE SODIUM [Concomitant]
  5. WELLBUTRIN [Concomitant]
  6. SIMVASTATIN [Concomitant]
  7. ABILIFY [Concomitant]
  8. REQUIP [Concomitant]
  9. ADVAIR DISKUS 100/50 [Concomitant]
  10. ALBUTEROL [Concomitant]

REACTIONS (1)
  - INSOMNIA [None]
